FAERS Safety Report 7534146-6 (Version None)
Quarter: 2011Q2

REPORT INFORMATION
  Report Type: 
  Country: None (occurrence: None)
  Receive Date: 20110608
  Receipt Date: 20061030
  Transmission Date: 20111010
  Serious: Yes (Hospitalization)
  Sender: FDA-Public Use
  Company Number: PHNU2006PL03581

PATIENT
  Sex: Male

DRUGS (1)
  1. LESCOL XL [Suspect]
     Dosage: 80 MG, QD
     Dates: start: 20050927

REACTIONS (4)
  - BODY TEMPERATURE INCREASED [None]
  - LIVER DISORDER [None]
  - ERYTHEMA [None]
  - SKIN REACTION [None]
